FAERS Safety Report 20717512 (Version 1)
Quarter: 2022Q2

REPORT INFORMATION
  Report Type: Spontaneous
  Country: US (occurrence: US)
  Receive Date: 20220417
  Receipt Date: 20220417
  Transmission Date: 20220721
  Serious: No
  Sender: FDA-Public Use
  Company Number: US-TEVA-2022-US-2020478

PATIENT
  Sex: Female

DRUGS (1)
  1. LORAZEPAM [Suspect]
     Active Substance: LORAZEPAM
     Indication: Nervousness

REACTIONS (4)
  - Sensitisation [Unknown]
  - Hypersensitivity [Unknown]
  - Nervousness [Unknown]
  - Panic reaction [Unknown]
